FAERS Safety Report 14713767 (Version 2)
Quarter: 2018Q2

REPORT INFORMATION
  Report Type: Spontaneous
  Country: FR (occurrence: FR)
  Receive Date: 20180404
  Receipt Date: 20180508
  Transmission Date: 20180711
  Serious: Yes (Other)
  Sender: FDA-Public Use
  Company Number: PHHY2017FR202080

PATIENT
  Age: 62 Year
  Sex: Male

DRUGS (23)
  1. BUSULFAN. [Concomitant]
     Active Substance: BUSULFAN
     Dosage: 288 MG (72 MG, QID (AT DAY-6 AND DAY-5))
     Route: 042
     Dates: start: 201508
  2. CYCLOPHOSPHAMIDE. [Concomitant]
     Active Substance: CYCLOPHOSPHAMIDE
     Indication: PRODUCT USED FOR UNKNOWN INDICATION
     Dosage: 5400 MG, (AT DAY-3 AND DAY-2)
     Route: 042
  3. ETOPOSIDE. [Suspect]
     Active Substance: ETOPOSIDE
     Indication: CENTRAL NERVOUS SYSTEM LYMPHOMA
     Dosage: UNK
     Route: 042
  4. ARACYTINE [Suspect]
     Active Substance: CYTARABINE
     Indication: CENTRAL NERVOUS SYSTEM LYMPHOMA
     Route: 042
  5. VINCRISTINE [Suspect]
     Active Substance: VINCRISTINE
     Indication: CENTRAL NERVOUS SYSTEM LYMPHOMA
     Route: 042
  6. UROMITEXAN [Suspect]
     Active Substance: MESNA
     Indication: CENTRAL NERVOUS SYSTEM LYMPHOMA
     Route: 042
  7. THIOTEPA. [Concomitant]
     Active Substance: THIOTEPA
     Indication: PRODUCT USED FOR UNKNOWN INDICATION
     Dosage: 525 MG, (DAY-9 TO DAY-7)
     Route: 042
  8. METHOTREXATE. [Suspect]
     Active Substance: METHOTREXATE
     Indication: CENTRAL NERVOUS SYSTEM LYMPHOMA
     Route: 042
  9. METHOTREXATE. [Suspect]
     Active Substance: METHOTREXATE
     Dosage: UNK
     Route: 042
  10. CARBOPLATIN. [Suspect]
     Active Substance: CARBOPLATIN
     Indication: CENTRAL NERVOUS SYSTEM LYMPHOMA
     Route: 042
  11. ETOPOSIDE. [Suspect]
     Active Substance: ETOPOSIDE
     Indication: ANGIODYSPLASIA
  12. NEUPOGEN [Suspect]
     Active Substance: FILGRASTIM
     Indication: PROPHYLAXIS
     Dosage: UNK
     Route: 051
  13. NEUPOGEN [Suspect]
     Active Substance: FILGRASTIM
     Dosage: UNK
     Route: 051
  14. NEULASTA [Suspect]
     Active Substance: PEGFILGRASTIM
     Indication: PROPHYLAXIS
     Dosage: UNK
     Route: 058
  15. BUSULFAN. [Concomitant]
     Active Substance: BUSULFAN
     Dosage: 72 MG, QID (AT DAY-6 AND DAY-5)
     Route: 042
     Dates: start: 201508
  16. IFOSFAMIDE. [Suspect]
     Active Substance: IFOSFAMIDE
     Indication: CENTRAL NERVOUS SYSTEM LYMPHOMA
     Route: 042
  17. AMIODARONE [Concomitant]
     Active Substance: AMIODARONE
     Indication: ARRHYTHMIA
     Route: 065
  18. RITUXIMAB. [Suspect]
     Active Substance: RITUXIMAB
     Indication: CENTRAL NERVOUS SYSTEM LYMPHOMA
     Route: 042
     Dates: start: 20150610, end: 20150610
  19. NATULAN [Suspect]
     Active Substance: PROCARBAZINE HYDROCHLORIDE
     Indication: CENTRAL NERVOUS SYSTEM LYMPHOMA
     Dosage: UNK
     Route: 048
  20. BUSULFAN. [Concomitant]
     Active Substance: BUSULFAN
     Dosage: 72 MG, BID (AT DAY-4)
     Route: 042
     Dates: start: 201508
  21. ZARZIO [Concomitant]
     Active Substance: FILGRASTIM
     Indication: FEBRILE BONE MARROW APLASIA
     Dosage: UNK
     Route: 065
  22. BUSULFAN. [Concomitant]
     Active Substance: BUSULFAN
     Indication: PRODUCT USED FOR UNKNOWN INDICATION
     Dosage: 144 MG (72 MG, BID (AT DAY-4))
     Route: 042
     Dates: start: 201508
  23. ARANESP [Concomitant]
     Active Substance: DARBEPOETIN ALFA
     Indication: FEBRILE BONE MARROW APLASIA
     Route: 065

REACTIONS (1)
  - Angiodysplasia [Not Recovered/Not Resolved]
